FAERS Safety Report 4498176-3 (Version None)
Quarter: 2004Q4

REPORT INFORMATION
  Report Type: 
  Country: None (occurrence: None)
  Receive Date: 20041110
  Receipt Date: 20041102
  Transmission Date: 20050328
  Serious: Yes (Death, Life-Threatening, Hospitalization)
  Sender: FDA-Public Use
  Company Number: US-MERCK-0411USA00420

PATIENT
  Age: 59 Year
  Sex: Male

DRUGS (8)
  1. VIOXX [Suspect]
     Indication: ARTHRITIS
     Route: 048
     Dates: start: 19990101
  2. VIOXX [Suspect]
     Indication: MUSCULOSKELETAL DISCOMFORT
     Route: 048
     Dates: start: 19990101
  3. LIPITOR [Concomitant]
     Route: 065
  4. CARDURA [Concomitant]
     Route: 065
  5. PROPULSID [Concomitant]
     Route: 065
  6. PEPCID [Concomitant]
     Route: 048
  7. PRILOSEC [Concomitant]
     Route: 048
  8. DEMADEX [Concomitant]
     Route: 065

REACTIONS (4)
  - ANGIONEUROTIC OEDEMA [None]
  - CHOLECYSTECTOMY [None]
  - MYOCARDIAL INFARCTION [None]
  - ROAD TRAFFIC ACCIDENT [None]
